FAERS Safety Report 4471085-1 (Version None)
Quarter: 2004Q4

REPORT INFORMATION
  Report Type: 
  Country: None (occurrence: None)
  Receive Date: 20041011
  Receipt Date: 20040929
  Transmission Date: 20050328
  Serious: Yes (Other)
  Sender: FDA-Public Use
  Company Number: PHEH2004US10552

PATIENT
  Sex: Male

DRUGS (1)
  1. GLEEVEC [Suspect]
     Dosage: ONCE A WEEK
     Route: 048
     Dates: start: 20040401

REACTIONS (3)
  - ASTHENIA [None]
  - HAEMOLYSIS [None]
  - NAUSEA [None]
